FAERS Safety Report 8537088-2 (Version None)
Quarter: 2012Q3

REPORT INFORMATION
  Report Type: 
  Country: None (occurrence: None)
  Receive Date: 20120725
  Receipt Date: 20120718
  Transmission Date: 20120928
  Serious: Yes (Hospitalization)
  Sender: FDA-Public Use
  Company Number: AT-PFIZER INC-2012174748

PATIENT
  Age: 70 Year
  Sex: Male
  Weight: 63.2 kg

DRUGS (10)
  1. LEVOTHYROXINE [Concomitant]
     Indication: PRIMARY HYPOTHYROIDISM
  2. GENOTROPIN [Suspect]
     Dosage: 0.6 MG, 7/WK
     Route: 058
     Dates: start: 20080118
  3. NORPROLAC [Concomitant]
     Indication: ANAEMIA
     Dosage: UNK
     Dates: start: 20050706
  4. ACETYLSALICYLIC ACID [Concomitant]
     Indication: PROPHYLAXIS
     Dosage: UNK
     Dates: start: 20070719
  5. NEBIDO [Concomitant]
     Indication: BLOOD LUTEINISING HORMONE ABNORMAL
     Dosage: UNK
     Dates: start: 20070719
  6. LEVOTHYROXINE [Concomitant]
     Indication: BLOOD THYROID STIMULATING HORMONE DECREASED
     Dosage: UNK
     Dates: start: 20050706
  7. NEBIDO [Concomitant]
     Indication: BLOOD FOLLICLE STIMULATING HORMONE ABNORMAL
  8. NEBIDO [Concomitant]
     Indication: HYPOGONADISM MALE
  9. CANDESARTAN CILEXETIL [Concomitant]
     Indication: ESSENTIAL HYPERTENSION
     Dosage: UNK
     Dates: start: 20070402
  10. AMLODIPINE [Concomitant]
     Indication: ESSENTIAL HYPERTENSION
     Dosage: UNK
     Dates: start: 20081127

REACTIONS (1)
  - HYPERTENSION [None]
